FAERS Safety Report 9163227 (Version 1)
Quarter: 2013Q1

REPORT INFORMATION
  Report Type: Spontaneous
  Country: US (occurrence: None)
  Receive Date: 20130225
  Receipt Date: 20130225
  Transmission Date: 20140127
  Serious: No
  Sender: FDA-Public Use
  Company Number: 2013-02845

PATIENT
  Sex: 0

DRUGS (1)
  1. GEMCITABINE [Suspect]
     Indication: PANCREATIC CARCINOMA

REACTIONS (3)
  - Neonatal respiratory distress syndrome [None]
  - Anaemia neonatal [None]
  - Foetal exposure during pregnancy [None]
